FAERS Safety Report 15826941 (Version 1)
Quarter: 2019Q1

REPORT INFORMATION
  Report Type: Spontaneous
  Country: IT (occurrence: IT)
  Receive Date: 20190115
  Receipt Date: 20190115
  Transmission Date: 20190417
  Serious: Yes (Death, Other)
  Sender: FDA-Public Use
  Company Number: IT-PFIZER INC-2019018688

PATIENT
  Sex: Female

DRUGS (2)
  1. ZALVISO [Suspect]
     Active Substance: SUFENTANIL CITRATE
     Indication: PROCEDURAL PAIN
     Dosage: 15 UG, UNK
     Route: 060
  2. NEURONTIN [Suspect]
     Active Substance: GABAPENTIN
     Indication: PROCEDURAL PAIN
     Dosage: UNK
     Route: 048

REACTIONS (1)
  - Pulmonary embolism [Fatal]

NARRATIVE: CASE EVENT DATE: 2018
